FAERS Safety Report 4721609-1 (Version None)
Quarter: 2005Q3

REPORT INFORMATION
  Report Type: 
  Country: None (occurrence: None)
  Receive Date: 20050721
  Receipt Date: 20041228
  Transmission Date: 20060218
  Serious: No
  Sender: FDA-Public Use
  Company Number: US-BRISTOL-MYERS SQUIBB COMPANY-12808390

PATIENT
  Age: 75 Year
  Sex: Male
  Weight: 100 kg

DRUGS (6)
  1. COUMADIN [Suspect]
     Indication: CARDIAC FAILURE CONGESTIVE
     Route: 048
  2. COUMADIN [Suspect]
     Indication: CARDIAC FIBRILLATION
     Route: 048
  3. COUMADIN [Suspect]
     Indication: CARDIAC DISORDER
     Route: 048
  4. WARFARIN SODIUM [Suspect]
  5. METOPROLOL [Concomitant]
  6. ENALAPRIL [Concomitant]

REACTIONS (4)
  - DRY SKIN [None]
  - PURPURA [None]
  - RASH PRURITIC [None]
  - SKIN LESION [None]
